FAERS Safety Report 16505490 (Version 6)
Quarter: 2020Q3

REPORT INFORMATION
  Report Type: Spontaneous
  Country: US (occurrence: US)
  Receive Date: 20190701
  Receipt Date: 20200908
  Transmission Date: 20201102
  Serious: No
  Sender: FDA-Public Use
  Company Number: US-SA-2019SA174639

PATIENT

DRUGS (18)
  1. DUPIXENT [Suspect]
     Active Substance: DUPILUMAB
     Indication: HYPERSENSITIVITY
     Dosage: 300 MG, QOW
     Route: 058
     Dates: start: 20200709, end: 2020
  2. HYDROXYZINE HYDROCHLORIDE. [Concomitant]
     Active Substance: HYDROXYZINE HYDROCHLORIDE
  3. ARIPIPRAZOLE. [Concomitant]
     Active Substance: ARIPIPRAZOLE
  4. BUSPIRONE [Concomitant]
     Active Substance: BUSPIRONE HYDROCHLORIDE
  5. NYSTATIN AND TRIAMCINOLONE [Concomitant]
     Active Substance: NYSTATIN\TRIAMCINOLONE ACETONIDE
  6. ZYRTEC [Concomitant]
     Active Substance: CETIRIZINE HYDROCHLORIDE
  7. DUPIXENT [Suspect]
     Active Substance: DUPILUMAB
     Indication: ECZEMA
  8. CLOTRIMAZOLE. [Concomitant]
     Active Substance: CLOTRIMAZOLE
  9. MUPIROCIN. [Concomitant]
     Active Substance: MUPIROCIN
  10. TACROLIMUS. [Concomitant]
     Active Substance: TACROLIMUS
  11. VENTOLIN HFA [Concomitant]
     Active Substance: ALBUTEROL SULFATE
  12. BACLOFEN. [Concomitant]
     Active Substance: BACLOFEN
  13. DUPIXENT [Suspect]
     Active Substance: DUPILUMAB
     Indication: DERMATITIS ATOPIC
     Dosage: 300 MG, QOW
     Route: 058
     Dates: start: 20190724, end: 201912
  14. LAMOTRIGINE. [Concomitant]
     Active Substance: LAMOTRIGINE
  15. TRIAMCINOLONE [Concomitant]
     Active Substance: TRIAMCINOLONE
  16. VYVANSE [Concomitant]
     Active Substance: LISDEXAMFETAMINE DIMESYLATE
  17. ZOLOFT [Concomitant]
     Active Substance: SERTRALINE HYDROCHLORIDE
  18. ADVIL MULTI SYMPTOM COLD + FLU [Concomitant]

REACTIONS (11)
  - Skin mass [Unknown]
  - Sleep disorder [Unknown]
  - Urticaria [Unknown]
  - Dermatitis atopic [Unknown]
  - Ligament rupture [Unknown]
  - Discomfort [Not Recovered/Not Resolved]
  - Pruritus [Unknown]
  - Unevaluable event [Unknown]
  - Rash [Unknown]
  - Product use in unapproved indication [Unknown]
  - Pruritus [Unknown]

NARRATIVE: CASE EVENT DATE: 2019
